FAERS Safety Report 4599475-7 (Version None)
Quarter: 2005Q1

REPORT INFORMATION
  Report Type: 
  Country: None (occurrence: None)
  Receive Date: 20050127
  Receipt Date: 20041015
  Transmission Date: 20050727
  Serious: No
  Sender: FDA-Public Use
  Company Number: USA041081274

PATIENT
  Age: 8 Year
  Sex: Male

DRUGS (1)
  1. STRATTERA [Suspect]
     Indication: ATTENTION DEFICIT/HYPERACTIVITY DISORDER
     Dosage: 10 MG/3 AT BEDTIME
     Dates: start: 20030701

REACTIONS (7)
  - ABDOMINAL PAIN UPPER [None]
  - DEPENDENT PERSONALITY DISORDER [None]
  - DISTURBANCE IN ATTENTION [None]
  - HEADACHE [None]
  - SOMNOLENCE [None]
  - TEARFULNESS [None]
  - WEIGHT INCREASED [None]
